FAERS Safety Report 8459660-0 (Version None)
Quarter: 2012Q2

REPORT INFORMATION
  Report Type: 
  Country: None (occurrence: None)
  Receive Date: 20120622
  Receipt Date: 20120613
  Transmission Date: 20120825
  Serious: Yes (Hospitalization, Other)
  Sender: FDA-Public Use
  Company Number: CA-JNJFOC-20120519122

PATIENT
  Sex: Female
  Weight: 84 kg

DRUGS (2)
  1. REMICADE [Suspect]
     Route: 042
     Dates: start: 20080714
  2. REMICADE [Suspect]
     Indication: RHEUMATOID ARTHRITIS
     Dosage: 26TH INFLIXIMAB TREATMENT
     Route: 042
     Dates: start: 20120329

REACTIONS (3)
  - FEELING ABNORMAL [None]
  - NAUSEA [None]
  - BREAKTHROUGH PAIN [None]
